FAERS Safety Report 7598175-9 (Version None)
Quarter: 2011Q3

REPORT INFORMATION
  Report Type: 
  Country: None (occurrence: None)
  Receive Date: 20110708
  Receipt Date: 20110629
  Transmission Date: 20111222
  Serious: Yes (Hospitalization)
  Sender: FDA-Public Use
  Company Number: DK-CELGENEUS-044-C5013-11043483

PATIENT
  Sex: Male
  Weight: 67.3 kg

DRUGS (20)
  1. CALCIUM VIT D [Concomitant]
     Route: 048
     Dates: start: 20101030
  2. MOTILIUM [Concomitant]
     Indication: NAUSEA
     Route: 048
     Dates: start: 20101124
  3. LENALIDOMIDE [Suspect]
     Dosage: 25 MILLIGRAM
     Route: 048
     Dates: start: 20110419, end: 20110423
  4. ACETAMINOPHEN [Concomitant]
     Route: 048
  5. GOSERELIN [Concomitant]
     Indication: PROSTATE CANCER
     Route: 058
     Dates: start: 20090420
  6. LENALIDOMIDE [Suspect]
     Indication: PROSTATE CANCER
     Dosage: 25 MILLIGRAM
     Route: 048
     Dates: start: 20110118
  7. PREDNISONE [Suspect]
     Dosage: 10 MILLIGRAM
     Route: 065
     Dates: start: 20110419
  8. GLUCOSAMINE [Concomitant]
     Indication: ARTHRITIS
     Route: 048
     Dates: start: 20101101
  9. ETORICOXIB [Concomitant]
     Indication: ARTHRITIS
     Route: 048
     Dates: start: 20101230
  10. PREDNISOLONE [Concomitant]
     Indication: TRANSFUSION REACTION
     Route: 048
     Dates: start: 20110208
  11. VALERIANA EXTRACT [Concomitant]
     Indication: ANXIETY
     Route: 048
     Dates: start: 20101230
  12. DOCETAXEL [Suspect]
     Dosage: 132 MILLIGRAM
     Route: 065
     Dates: start: 20110419, end: 20110419
  13. ZOLEDRONIC ACID [Concomitant]
     Route: 051
     Dates: start: 20051201
  14. CLEMASTINE FUMARATE [Concomitant]
     Indication: TRANSFUSION REACTION
     Route: 051
     Dates: start: 20110208
  15. VITAMIN TAB [Concomitant]
     Indication: SUPPLEMENTATION THERAPY
     Route: 048
     Dates: start: 20101230
  16. DIAZEPAM [Concomitant]
     Indication: TRANSFUSION REACTION
     Route: 051
     Dates: start: 20110208
  17. LENALIDOMIDE [Suspect]
     Dosage: 25 MILLIGRAM
     Route: 048
     Dates: start: 20110510
  18. DOCETAXEL [Suspect]
     Indication: PROSTATE CANCER
     Dosage: 130 MILLIGRAM
     Route: 065
     Dates: start: 20110118
  19. PREDNISONE [Suspect]
     Indication: PROSTATE CANCER
     Dosage: 10 MILLIGRAM
     Route: 065
     Dates: start: 20110118
  20. ACETAMINOPHEN [Concomitant]
     Indication: ARTHRITIS
     Route: 048
     Dates: start: 20101230

REACTIONS (3)
  - GENERAL PHYSICAL HEALTH DETERIORATION [None]
  - PAIN IN EXTREMITY [None]
  - PYREXIA [None]
